FAERS Safety Report 5480200-2 (Version None)
Quarter: 2007Q4

REPORT INFORMATION
  Report Type: 
  Country: None (occurrence: None)
  Receive Date: 20071009
  Receipt Date: 20070927
  Transmission Date: 20080405
  Serious: Yes (Hospitalization, Other)
  Sender: FDA-Public Use
  Company Number: US-TYCO HEALTHCARE/MALLINCKRODT-T200701182

PATIENT

DRUGS (6)
  1. METHADONE HCL [Suspect]
     Indication: BACK PAIN
     Dosage: ONE TABLET EVERY 8 HOURS
     Route: 048
     Dates: start: 20070823, end: 20070920
  2. METHADONE HCL [Suspect]
     Dosage: TWO 10 MG TABLETS EVERY EIGHT HOURS
     Dates: start: 20070920, end: 20070926
  3. LODINE [Concomitant]
     Indication: BACK PAIN
  4. FLEXERIL [Concomitant]
     Indication: BACK PAIN
     Dates: start: 20070801
  5. NEURONTIN [Concomitant]
     Indication: BACK PAIN
  6. ROBAXIN [Concomitant]
     Indication: BACK PAIN

REACTIONS (8)
  - CHEST PAIN [None]
  - CHILLS [None]
  - CYANOSIS [None]
  - DRUG WITHDRAWAL SYNDROME [None]
  - DYSPNOEA [None]
  - HYPOAESTHESIA [None]
  - LOSS OF CONSCIOUSNESS [None]
  - PARAESTHESIA [None]
